FAERS Safety Report 5989673-X (Version None)
Quarter: 2008Q4

REPORT INFORMATION
  Report Type: 
  Country: None (occurrence: None)
  Receive Date: 20081208
  Receipt Date: 20081125
  Transmission Date: 20090506
  Serious: Yes (Disabling)
  Sender: FDA-Public Use
  Company Number: GXKR2008GB11425

PATIENT
  Age: 46 Year

DRUGS (5)
  1. GABAPENTIN [Suspect]
     Indication: EPILEPSY
     Dosage: 900 MG, BID
  2. LAMOTRIGINE [Suspect]
     Indication: EPILEPSY
     Dosage: 200 MG, BID, ORAL
     Route: 048
  3. CARBAMAZEPINE [Suspect]
     Indication: EPILEPSY
     Dosage: 400 MG, ORAL
     Route: 048
  4. TOPAMAX [Suspect]
     Indication: EPILEPSY
     Dosage: 100 MG, BID
  5. ACETAMINOPHEN [Concomitant]

REACTIONS (4)
  - MACULAR DEGENERATION [None]
  - MACULOPATHY [None]
  - RETINAL DEPOSITS [None]
  - VISUAL ACUITY REDUCED [None]
